FAERS Safety Report 8971029 (Version 2)
Quarter: 2013Q1

REPORT INFORMATION
  Report Type: Spontaneous
  Country: US (occurrence: US)
  Receive Date: 20121218
  Receipt Date: 20130111
  Transmission Date: 20140127
  Serious: Yes (Congenital Anomaly, Other)
  Sender: FDA-Public Use
  Company Number: US-PFIZER INC-2012311738

PATIENT
  Sex: Male

DRUGS (9)
  1. ZOLOFT [Suspect]
     Indication: ANXIETY
     Dosage: UNK
     Route: 064
     Dates: start: 199912, end: 2007
  2. ZOLOFT [Suspect]
     Indication: DEPRESSION
  3. ZOLOFT [Suspect]
     Indication: AFFECTIVE DISORDER
  4. CALCIUM [Concomitant]
     Dosage: UNK
     Route: 064
  5. PRENATAL VITAMINS [Concomitant]
     Dosage: UNK
     Route: 064
  6. FOLIC ACID [Concomitant]
     Dosage: UNK
     Route: 064
  7. B COMPLEX [Concomitant]
     Dosage: UNK
     Route: 064
  8. ZITHROMAX [Concomitant]
     Dosage: UNK
     Route: 064
  9. SUDAFED [Concomitant]
     Dosage: UNK
     Route: 064

REACTIONS (21)
  - Maternal exposure timing unspecified [Unknown]
  - Congenital anomaly [Unknown]
  - Patent ductus arteriosus [Unknown]
  - Pulmonary artery stenosis congenital [Unknown]
  - Brain malformation [Unknown]
  - Cerebellar hypoplasia [Unknown]
  - Ventricular septal defect [Unknown]
  - Congenital hypothyroidism [Unknown]
  - Cardiac failure congestive [Unknown]
  - Neonatal respiratory failure [Unknown]
  - Hydronephrosis [Unknown]
  - Periventricular leukomalacia [Unknown]
  - Cerebral haemangioma [Unknown]
  - Hepatosplenomegaly neonatal [Unknown]
  - Hypotonia neonatal [Unknown]
  - Cardiomegaly [Unknown]
  - Strabismus [Unknown]
  - Splenomegaly [Unknown]
  - Premature baby [Unknown]
  - Gastrooesophageal reflux disease [Unknown]
  - Lipoma [Unknown]
